FAERS Safety Report 24371978 (Version 1)
Quarter: 2024Q3

REPORT INFORMATION
  Report Type: Spontaneous
  Country: US (occurrence: None)
  Receive Date: 20240926
  Receipt Date: 20240926
  Transmission Date: 20241017
  Serious: Yes (Life-Threatening, Hospitalization)
  Sender: Public
  Company Number: None

PATIENT
  Age: 64 Year
  Sex: Female
  Weight: 57.8 kg

DRUGS (1)
  1. YESCARTA [Suspect]
     Active Substance: AXICABTAGENE CILOLEUCEL
     Indication: Diffuse large B-cell lymphoma
     Dosage: OTHER FREQUENCY : ONCE;?
     Route: 042
     Dates: start: 20240829, end: 20240829

REACTIONS (10)
  - Cytokine release syndrome [None]
  - Hypotension [None]
  - Mental status changes [None]
  - Streptococcus test positive [None]
  - Actinomyces test positive [None]
  - Immune effector cell-associated neurotoxicity syndrome [None]
  - Brain scan abnormal [None]
  - Cerebral atrophy [None]
  - Basal ganglia infarction [None]
  - Paranasal sinus discomfort [None]

NARRATIVE: CASE EVENT DATE: 20240903
